FAERS Safety Report 18186593 (Version 1)
Quarter: 2020Q3

REPORT INFORMATION
  Report Type: Spontaneous
  Country: US (occurrence: US)
  Receive Date: 20200821
  Receipt Date: 20200821
  Transmission Date: 20201103
  Serious: Yes (Death)
  Sender: FDA-Public Use
  Company Number: None

PATIENT
  Age: 64 Year
  Sex: Male

DRUGS (1)
  1. EUFLEXXA [Suspect]
     Active Substance: HYALURONATE SODIUM
     Dosage: ?          OTHER FREQUENCY:OTHER;?
     Route: 014
     Dates: start: 202007, end: 202008

REACTIONS (1)
  - Death [None]

NARRATIVE: CASE EVENT DATE: 20200803
